FAERS Safety Report 8567688-5 (Version None)
Quarter: 2012Q3

REPORT INFORMATION
  Report Type: 
  Country: None (occurrence: None)
  Receive Date: 20120803
  Receipt Date: 20120723
  Transmission Date: 20120928
  Serious: Yes (Hospitalization, Other)
  Sender: FDA-Public Use
  Company Number: US-ELI_LILLY_AND_COMPANY-US201207007202

PATIENT
  Age: 73 Year
  Sex: Male

DRUGS (25)
  1. PROZAC [Suspect]
     Indication: DEPRESSION
     Dosage: 20 MG, UNK
  2. CLEMASTINE FURARATE [Concomitant]
  3. LASIX [Concomitant]
  4. DILANTIN [Concomitant]
  5. MEXILETINE HYDROCHLORIDE [Concomitant]
  6. FERROUS SULFATE TAB [Concomitant]
  7. PROZAC [Suspect]
     Dosage: 60 MG, UNK
  8. ACETYLCYSTEINE [Concomitant]
  9. COZAAR [Concomitant]
  10. TOPROL-XL [Concomitant]
  11. PREDNISONE [Concomitant]
  12. PROZAC [Suspect]
     Dosage: 40 MG, UNK
  13. SYMBICORT [Concomitant]
  14. COENZYME Q10 [Concomitant]
  15. POTASSIUM CHLORIDE [Concomitant]
  16. HUMALOG [Concomitant]
  17. PROZAC [Suspect]
     Dosage: 40 MG, UNK
  18. ALPRAZOLAM [Concomitant]
  19. CALCIUM WITH VITAMIN D [Concomitant]
  20. ISOSORBIDE MONONITRATE [Concomitant]
  21. LANTUS [Concomitant]
  22. ASPIRIN [Concomitant]
  23. PROZAC [Suspect]
     Dosage: 60 MG, UNK
  24. FLUOXETINE HYDROCHLORIDE [Concomitant]
     Indication: DEPRESSION
     Dosage: 60 MG, UNK
  25. ASCORBIC ACID [Concomitant]

REACTIONS (14)
  - SUICIDAL IDEATION [None]
  - DEPRESSED MOOD [None]
  - CARDIOVERSION [None]
  - WEIGHT DECREASED [None]
  - AGGRESSION [None]
  - CARDIAC PACEMAKER INSERTION [None]
  - PSEUDOMONAS INFECTION [None]
  - GENERAL PHYSICAL HEALTH DETERIORATION [None]
  - CRYING [None]
  - LEG AMPUTATION [None]
  - LIMB OPERATION [None]
  - APPETITE DISORDER [None]
  - OSTEOMYELITIS [None]
  - FINGER AMPUTATION [None]
